FAERS Safety Report 9251825 (Version 1)
Quarter: 2013Q2

REPORT INFORMATION
  Report Type: Spontaneous
  Country: US (occurrence: US)
  Receive Date: 20130424
  Receipt Date: 20130424
  Transmission Date: 20140414
  Serious: No
  Sender: FDA-Public Use
  Company Number: US-PFIZER INC-2013125427

PATIENT
  Age: 43 Year
  Sex: Female
  Weight: 73.47 kg

DRUGS (4)
  1. LYRICA [Suspect]
     Indication: NERVE INJURY
     Dosage: 75 MG, 1X/DAY
  2. LYRICA [Suspect]
     Dosage: 100 MG, 1X/DAY
     Dates: start: 2012
  3. HYDROCODONE [Concomitant]
     Indication: COMPLEX REGIONAL PAIN SYNDROME
     Dosage: 10 MG, 1X/DAY
  4. IBUPROFEN [Concomitant]
     Dosage: UNK, AS NEEDED

REACTIONS (2)
  - Drug ineffective [Unknown]
  - Expired drug administered [Unknown]
